FAERS Safety Report 7982717-5 (Version None)
Quarter: 2011Q4

REPORT INFORMATION
  Report Type: 
  Country: None (occurrence: None)
  Receive Date: 20111215
  Receipt Date: 20111211
  Transmission Date: 20120403
  Serious: Yes (Death, Other)
  Sender: FDA-Public Use
  Company Number: IR-SANOFI-AVENTIS-2011SA081650

PATIENT
  Age: 38 Year
  Sex: Female

DRUGS (2)
  1. ELOXATIN [Suspect]
     Indication: COLORECTAL CANCER
     Route: 042
     Dates: start: 20110911, end: 20111201
  2. FLUOROURACIL [Concomitant]
     Indication: COLORECTAL CANCER
     Route: 065
     Dates: start: 20110912, end: 20111201

REACTIONS (3)
  - HYPOTENSION [None]
  - CARDIOGENIC SHOCK [None]
  - CHEST PAIN [None]
